FAERS Safety Report 7273737-7 (Version None)
Quarter: 2011Q1

REPORT INFORMATION
  Report Type: 
  Country: None (occurrence: None)
  Receive Date: 20110203
  Receipt Date: 20110125
  Transmission Date: 20110831
  Serious: Yes (Hospitalization)
  Sender: FDA-Public Use
  Company Number: CA-BAXTER-2011BH002586

PATIENT
  Sex: Male

DRUGS (8)
  1. NITROGLYCERIN [Concomitant]
     Indication: PRODUCT USED FOR UNKNOWN INDICATION
     Route: 065
     Dates: end: 20110114
  2. DIANEAL [Suspect]
     Indication: PERITONEAL DIALYSIS
     Route: 033
     Dates: start: 20090116
  3. COUMADIN [Concomitant]
     Indication: ATRIAL FIBRILLATION
     Route: 065
  4. CRESTOR [Concomitant]
     Indication: LIPIDS ABNORMAL
     Route: 048
  5. ASPIRIN [Concomitant]
     Indication: PRODUCT USED FOR UNKNOWN INDICATION
     Route: 048
  6. DIANEAL [Suspect]
     Indication: PERITONEAL DIALYSIS
     Route: 033
     Dates: start: 20090116
  7. METOPROLOL [Concomitant]
     Indication: HYPERTENSION
     Route: 048
  8. EXTRANEAL [Suspect]
     Indication: PERITONEAL DIALYSIS
     Route: 033
     Dates: start: 20090116

REACTIONS (1)
  - MYOCARDIAL INFARCTION [None]
